FAERS Safety Report 10530606 (Version 4)
Quarter: 2014Q4

REPORT INFORMATION
  Report Type: Spontaneous
  Country: IT (occurrence: IT)
  Receive Date: 20141021
  Receipt Date: 20141201
  Transmission Date: 20150528
  Serious: Yes (Hospitalization)
  Sender: FDA-Public Use
  Company Number: IT-SA-2014SA142405

PATIENT
  Age: 79 Year
  Sex: Female

DRUGS (11)
  1. TRITTICO [Suspect]
     Active Substance: TRAZODONE HYDROCHLORIDE
     Indication: COGNITIVE DISORDER
     Dosage: STRENGTH: 25 MG/ML
     Route: 048
     Dates: start: 2013
  2. LANOXIN [Suspect]
     Active Substance: DIGOXIN
     Dosage: DOSE:.25 MILLIGRAM(S)/MILLILITRE
     Route: 042
     Dates: start: 20141001, end: 20141001
  3. LASIX [Suspect]
     Active Substance: FUROSEMIDE
     Indication: CARDIAC DISORDER
     Route: 048
     Dates: start: 2013
  4. SEREUPIN [Suspect]
     Active Substance: PAROXETINE HYDROCHLORIDE
     Indication: ADJUSTMENT DISORDER WITH DEPRESSED MOOD
     Route: 048
     Dates: start: 2012
  5. BISOPROLOL FUMARATE. [Suspect]
     Active Substance: BISOPROLOL FUMARATE
     Indication: ATRIAL FIBRILLATION
     Route: 048
     Dates: start: 2013
  6. TRIATEC [Suspect]
     Active Substance: RAMIPRIL
     Indication: HYPERTENSION
     Route: 048
     Dates: start: 2010
  7. LANOXIN [Suspect]
     Active Substance: DIGOXIN
     Indication: ATRIAL FIBRILLATION
     Dosage: DOSE:.25 MILLIGRAM(S)/MILLILITRE
     Route: 042
     Dates: start: 20141001, end: 20141001
  8. LANOXIN [Suspect]
     Active Substance: DIGOXIN
     Route: 048
     Dates: start: 2010
  9. DIAMICRON [Suspect]
     Active Substance: GLICLAZIDE
     Indication: DIABETES MELLITUS
     Route: 048
     Dates: start: 2012, end: 201404
  10. KEPPRA [Suspect]
     Active Substance: LEVETIRACETAM
     Indication: POST-TRAUMATIC EPILEPSY
     Route: 048
     Dates: start: 2013
  11. LANSOX [Suspect]
     Active Substance: LANSOPRAZOLE
     Indication: GASTRITIS
     Route: 048
     Dates: start: 2010

REACTIONS (7)
  - Atrial fibrillation [Recovering/Resolving]
  - Malaise [Recovering/Resolving]
  - Diabetic metabolic decompensation [Recovering/Resolving]
  - Medication error [Unknown]
  - Fatigue [Recovering/Resolving]
  - Bradyphrenia [Recovering/Resolving]
  - Cardioactive drug level increased [Recovered/Resolved]

NARRATIVE: CASE EVENT DATE: 20141001
